FAERS Safety Report 14110657 (Version 1)
Quarter: 2017Q4

REPORT INFORMATION
  Report Type: Spontaneous
  Country: CN (occurrence: CN)
  Receive Date: 20171020
  Receipt Date: 20171020
  Transmission Date: 20180321
  Serious: Yes (Death)
  Sender: FDA-Public Use
  Company Number: PHHY2017CN153415

PATIENT
  Age: 31 Year
  Sex: Male

DRUGS (6)
  1. TACROLIMUS. [Suspect]
     Active Substance: TACROLIMUS
     Indication: RENAL TRANSPLANT
     Dosage: 0.15 MG/KG, UNK (0.10 TO 0.15 MG/KG)
     Route: 065
  2. METHYLPREDNISOLONE. [Suspect]
     Active Substance: METHYLPREDNISOLONE
     Indication: IMMUNOSUPPRESSANT DRUG THERAPY
  3. CICLOSPORIN [Suspect]
     Active Substance: CYCLOSPORINE
     Indication: IMMUNOSUPPRESSANT DRUG THERAPY
  4. TACROLIMUS. [Suspect]
     Active Substance: TACROLIMUS
     Indication: IMMUNOSUPPRESSANT DRUG THERAPY
  5. CICLOSPORIN [Suspect]
     Active Substance: CYCLOSPORINE
     Indication: RENAL TRANSPLANT
     Dosage: 5 MG/KG, UNK (4-5 MG/KG)
     Route: 065
  6. METHYLPREDNISOLONE. [Suspect]
     Active Substance: METHYLPREDNISOLONE
     Indication: RENAL TRANSPLANT
     Dosage: 48 MG, QD
     Route: 048

REACTIONS (10)
  - Dysuria [Fatal]
  - Lung infection [Fatal]
  - Klebsiella infection [Fatal]
  - Kidney infection [Fatal]
  - Pyrexia [Fatal]
  - Micturition urgency [Fatal]
  - Urinary tract infection [Fatal]
  - Staphylococcal infection [Fatal]
  - Delayed graft function [Fatal]
  - Acinetobacter infection [Fatal]
